FAERS Safety Report 10362544 (Version 1)
Quarter: 2014Q1

REPORT INFORMATION
  Report Type: Spontaneous
  Country: US (occurrence: None)
  Receive Date: 20140306
  Receipt Date: 20140306
  Transmission Date: 20141002
  Serious: Yes (Other)
  Sender: FDA-Public Use
  Company Number: 163-21880-13051489

PATIENT
  Age: 63 Year
  Sex: Male
  Weight: 80.74 kg

DRUGS (6)
  1. REVLIMID (LENALIDOMIDE)(10 MILLIGRAM, CAPSULES) [Suspect]
     Indication: PLASMA CELL MYELOMA
     Dosage: 10 MG, 28 IN 28 D
     Route: 048
     Dates: start: 201211
  2. DEXAMETHASONE(DEXAMETHASONE)(UNKNOWN) [Concomitant]
  3. RITALIN(METHYLPHENIDATE HYDROCHLORIDE)(UNKNOWN) [Concomitant]
  4. CONCERTA(METHYLPHENIDATE HYDROCHLORIDE)(UNKNOWN) [Concomitant]
  5. TRAZODONE(TRAZODONE)(UNKNOWN)? [Concomitant]
  6. VELCADE(BORTEZOMIB)(UNKNOWN)? [Concomitant]

REACTIONS (1)
  - Neuropathy peripheral [None]
